FAERS Safety Report 8398185-8 (Version None)
Quarter: 2012Q1

REPORT INFORMATION
  Report Type: 
  Country: None (occurrence: None)
  Receive Date: 20120323
  Receipt Date: 20110217
  Transmission Date: 20120608
  Serious: Yes (Hospitalization)
  Sender: FDA-Public Use
  Company Number: 163-21880-11011297

PATIENT
  Sex: Female
  Weight: 77.27 kg

DRUGS (10)
  1. ZOMEA (ZOLEDRONIC ACID) [Concomitant]
  2. NEXIUM [Concomitant]
  3. REVLIMID [Suspect]
     Indication: MULTIPLE MYELOMA
     Dosage: 25 MG, X 21 DAYS, PO
     Route: 048
     Dates: start: 20090827
  4. TRAZODONE HCL [Concomitant]
  5. ADVAIR HFA [Concomitant]
  6. PROZAC [Concomitant]
  7. DECADRON [Concomitant]
  8. MULTIVITAMIN [Concomitant]
  9. CLARITIN [Concomitant]
  10. ASPIRIN [Concomitant]

REACTIONS (20)
  - BRONCHITIS [None]
  - ERYTHEMA [None]
  - BRADYCARDIA [None]
  - STREPTOCOCCAL INFECTION [None]
  - STOMATITIS [None]
  - PNEUMONIA [None]
  - WEIGHT DECREASED [None]
  - SEDATION [None]
  - DIARRHOEA [None]
  - PROTHROMBIN TIME PROLONGED [None]
  - DIZZINESS [None]
  - DEHYDRATION [None]
  - CARDIAC FIBROMA [None]
  - HYPERHIDROSIS [None]
  - ATRIAL SEPTAL DEFECT [None]
  - CHRONIC SINUSITIS [None]
  - HYPERSENSITIVITY [None]
  - BENIGN CARDIAC NEOPLASM [None]
  - URINARY TRACT INFECTION [None]
  - THROAT IRRITATION [None]
